FAERS Safety Report 4866700-4 (Version None)
Quarter: 2005Q4

REPORT INFORMATION
  Report Type: 
  Country: None (occurrence: None)
  Receive Date: 20051221
  Receipt Date: 20051205
  Transmission Date: 20060501
  Serious: Yes (Hospitalization)
  Sender: FDA-Public Use
  Company Number: S05-FRA-05670-01

PATIENT
  Age: 82 Year
  Sex: Male

DRUGS (18)
  1. CITALOPRAM HYDROBROMIDE [Suspect]
     Indication: CONFUSIONAL STATE
     Dosage: 40 MG QD PO
     Route: 048
     Dates: start: 20050928
  2. CITALOPRAM HYDROBROMIDE [Suspect]
     Indication: SENILE DEMENTIA
     Dosage: 40 MG QD PO
     Route: 048
     Dates: start: 20050928
  3. CITALOPRAM HYDROBROMIDE [Suspect]
     Indication: CONFUSIONAL STATE
     Dosage: 40 MG QD PO
     Route: 048
     Dates: start: 20050802, end: 20050901
  4. CITALOPRAM HYDROBROMIDE [Suspect]
     Indication: SENILE DEMENTIA
     Dosage: 40 MG QD PO
     Route: 048
     Dates: start: 20050802, end: 20050901
  5. STILNOX (ZOLPIDEM) [Suspect]
     Indication: CONFUSIONAL STATE
     Dosage: 10 MG QD PO
     Route: 048
     Dates: start: 20050928
  6. STILNOX (ZOLPIDEM) [Suspect]
     Indication: SENILE DEMENTIA
     Dosage: 10 MG QD PO
     Route: 048
     Dates: start: 20050928
  7. STILNOX (ZOLPIDEM) [Suspect]
     Indication: CONFUSIONAL STATE
     Dosage: 10 MG QD PO
     Route: 048
     Dates: start: 20050802, end: 20050901
  8. STILNOX (ZOLPIDEM) [Suspect]
     Indication: SENILE DEMENTIA
     Dosage: 10 MG QD PO
     Route: 048
     Dates: start: 20050802, end: 20050901
  9. LORMETAZEPAM [Suspect]
     Indication: CONFUSIONAL STATE
     Dosage: 1 MG QD PO
     Route: 048
     Dates: start: 20050923, end: 20050928
  10. LORMETAZEPAM [Suspect]
     Indication: SENILE DEMENTIA
     Dosage: 1 MG QD PO
     Route: 048
     Dates: start: 20050923, end: 20050928
  11. VALIUM [Suspect]
     Indication: CONFUSIONAL STATE
     Dosage: 20 QD PO
     Route: 048
     Dates: start: 20050917, end: 20050928
  12. VALIUM [Suspect]
     Indication: SENILE DEMENTIA
     Dosage: 20 QD PO
     Route: 048
     Dates: start: 20050917, end: 20050928
  13. CLOZAPINE [Suspect]
     Indication: CONFUSIONAL STATE
     Dosage: 25 MG QD PO
     Route: 048
     Dates: start: 20050928
  14. CLOZAPINE [Suspect]
     Indication: SENILE DEMENTIA
     Dosage: 25 MG QD PO
     Route: 048
     Dates: start: 20050928
  15. CLOZAPINE [Suspect]
     Indication: CONFUSIONAL STATE
     Dosage: 25 MG QD PO
     Route: 048
     Dates: start: 20050802, end: 20050901
  16. CLOZAPINE [Suspect]
     Indication: SENILE DEMENTIA
     Dosage: 25 MG QD PO
     Route: 048
     Dates: start: 20050802, end: 20050901
  17. CASODEX [Suspect]
  18. XANAX [Concomitant]

REACTIONS (5)
  - COGNITIVE DISORDER [None]
  - CONDITION AGGRAVATED [None]
  - HALLUCINATION [None]
  - MENINGITIS ASEPTIC [None]
  - MYOCLONUS [None]
